FAERS Safety Report 10017668 (Version 1)
Quarter: 2014Q1

REPORT INFORMATION
  Report Type: Spontaneous
  Country: US (occurrence: None)
  Receive Date: 20140313
  Receipt Date: 20140313
  Transmission Date: 20141002
  Serious: Yes (Disabling)
  Sender: FDA-Public Use
  Company Number: None

PATIENT
  Age: 72 Year
  Sex: Female
  Weight: 95.26 kg

DRUGS (6)
  1. LOSARTAN [Suspect]
     Indication: HYPERTENSION
     Dosage: 1 PILL  1 TABLET ONCE A DAY
     Route: 048
     Dates: start: 20130302, end: 201303
  2. ASPIRIN [Concomitant]
  3. GLIMEPIDE (AMARYL) [Concomitant]
  4. LEVTHYROXIN (SYNTHROID) [Concomitant]
  5. OMEGA 3 [Concomitant]
  6. MULTIVITAMIN [Concomitant]

REACTIONS (9)
  - Musculoskeletal stiffness [None]
  - Gait disturbance [None]
  - Musculoskeletal pain [None]
  - Arthralgia [None]
  - Pain in extremity [None]
  - Arthralgia [None]
  - Arthralgia [None]
  - Cough [None]
  - Gait disturbance [None]
